FAERS Safety Report 22025782 (Version 5)
Quarter: 2023Q2

REPORT INFORMATION
  Report Type: Spontaneous
  Country: US (occurrence: US)
  Receive Date: 20230223
  Receipt Date: 20230425
  Transmission Date: 20230721
  Serious: No
  Sender: FDA-Public Use
  Company Number: US-PFIZER INC-202300071754

PATIENT
  Age: 25 Year
  Sex: Female

DRUGS (1)
  1. NICOTROL [Suspect]
     Active Substance: NICOTINE
     Indication: Smoking cessation therapy
     Dosage: UNK
     Route: 055

REACTIONS (4)
  - Device use issue [Unknown]
  - Dysphonia [Recovering/Resolving]
  - Oropharyngeal discomfort [Unknown]
  - Tooth disorder [Unknown]
